FAERS Safety Report 5851230-3 (Version None)
Quarter: 2008Q3

REPORT INFORMATION
  Report Type: 
  Country: None (occurrence: None)
  Receive Date: 20080820
  Receipt Date: 20080813
  Transmission Date: 20090109
  Serious: Yes (Other)
  Sender: FDA-Public Use
  Company Number: PHHO2008DE09858

PATIENT
  Sex: Male
  Weight: 68 kg

DRUGS (4)
  1. ZOLEDRONIC ACID [Suspect]
     Indication: METASTASES TO BONE
     Dosage: 4MG EVERY 4 WEEKS
     Route: 042
     Dates: start: 20071130
  2. TAXOTERE [Suspect]
     Indication: PROSTATE CANCER
     Dosage: 57MG WEEKLY
     Route: 042
     Dates: start: 20080118
  3. CALCIUM [Concomitant]
  4. VITAMIN D [Concomitant]

REACTIONS (3)
  - DISEASE PROGRESSION [None]
  - IMPAIRED HEALING [None]
  - TOOTH EXTRACTION [None]
